FAERS Safety Report 15937823 (Version 1)
Quarter: 2019Q1

REPORT INFORMATION
  Report Type: Spontaneous
  Country: US (occurrence: US)
  Receive Date: 20190208
  Receipt Date: 20190208
  Transmission Date: 20190417
  Serious: Yes (Other)
  Sender: FDA-Public Use
  Company Number: US-AKORN PHARMACEUTICALS-2018AKN02054

PATIENT
  Age: 16 Year
  Sex: Male
  Weight: 58.96 kg

DRUGS (1)
  1. MYORISAN [Suspect]
     Active Substance: ISOTRETINOIN
     Indication: ACNE
     Dosage: UNK MG, 1X/DAY
     Dates: start: 20181030, end: 20181109

REACTIONS (6)
  - Asthenia [Recovered/Resolved]
  - Off label use [Recovered/Resolved]
  - Mood altered [Recovered/Resolved]
  - Disturbance in attention [Recovered/Resolved]
  - Crying [Recovered/Resolved]
  - Depression [Recovered/Resolved]

NARRATIVE: CASE EVENT DATE: 2018
